FAERS Safety Report 8535713-3 (Version None)
Quarter: 2012Q3

REPORT INFORMATION
  Report Type: 
  Country: None (occurrence: None)
  Receive Date: 20120725
  Receipt Date: 20120724
  Transmission Date: 20120928
  Serious: No
  Sender: FDA-Public Use
  Company Number: US-PFIZER INC-2012179198

PATIENT
  Sex: Female
  Weight: 49.4 kg

DRUGS (4)
  1. CHANTIX [Suspect]
     Indication: SMOKING CESSATION THERAPY
     Dosage: 0.5 MG, 1X/DAY
     Route: 048
     Dates: start: 20120620, end: 20120101
  2. ZANTAC [Concomitant]
     Dosage: UNK
  3. CHANTIX [Suspect]
     Dosage: 1 MG, 2X/DAY
     Route: 048
     Dates: start: 20120101, end: 20120701
  4. ZOCOR [Concomitant]
     Dosage: UNK

REACTIONS (4)
  - BEDRIDDEN [None]
  - VOMITING [None]
  - CHILLS [None]
  - MALAISE [None]
